FAERS Safety Report 6065059-7 (Version None)
Quarter: 2009Q1

REPORT INFORMATION
  Report Type: 
  Country: None (occurrence: None)
  Receive Date: 20090203
  Receipt Date: 20090203
  Transmission Date: 20090719
  Serious: Yes (Hospitalization, Other)
  Sender: FDA-Public Use
  Company Number: None

PATIENT
  Age: 90 Year
  Sex: Male
  Weight: 67.5 kg

DRUGS (1)
  1. LEVOFLOXACIN [Suspect]
     Indication: URINARY TRACT INFECTION
     Dosage: 250MG EVERY 48 HOURS IV 3 DOSES
     Route: 042
     Dates: start: 20090105, end: 20090109

REACTIONS (1)
  - HYPOGLYCAEMIA [None]
